FAERS Safety Report 12027947 (Version 1)
Quarter: 2016Q1

REPORT INFORMATION
  Report Type: Report from Study
  Country: US (occurrence: US)
  Receive Date: 20160207
  Receipt Date: 20160207
  Transmission Date: 20160526
  Serious: Yes (Hospitalization)
  Sender: FDA-Public Use
  Company Number: US-ABBVIE-15K-163-1491995-00

PATIENT
  Age: 29 Year
  Sex: Male
  Weight: 45.4 kg

DRUGS (1)
  1. HUMIRA [Suspect]
     Active Substance: ADALIMUMAB
     Indication: CROHN^S DISEASE
     Route: 058
     Dates: start: 201108, end: 20150924

REACTIONS (5)
  - Abdominal abscess [Not Recovered/Not Resolved]
  - Pain in extremity [Recovering/Resolving]
  - Injection site nodule [Recovered/Resolved]
  - Escherichia infection [Not Recovered/Not Resolved]
  - Influenza [Recovered/Resolved]

NARRATIVE: CASE EVENT DATE: 201509
